FAERS Safety Report 11017297 (Version 2)
Quarter: 2015Q2

REPORT INFORMATION
  Report Type: Spontaneous
  Country: US (occurrence: US)
  Receive Date: 20150412
  Receipt Date: 20150525
  Transmission Date: 20150821
  Serious: No
  Sender: FDA-Public Use
  Company Number: US-JNJFOC-20140107199

PATIENT
  Age: 21 Year
  Sex: Female
  Weight: 52.16 kg

DRUGS (2)
  1. ORTHO EVRA [Suspect]
     Active Substance: ETHINYL ESTRADIOL\NORELGESTROMIN
     Indication: MENSTRUAL CYCLE MANAGEMENT
     Route: 062
     Dates: start: 201312
  2. ISOTRETINOIN [Concomitant]
     Active Substance: ISOTRETINOIN
     Indication: ACNE
     Route: 048
     Dates: start: 20130903, end: 20140104

REACTIONS (2)
  - Product use issue [Unknown]
  - Diarrhoea [Not Recovered/Not Resolved]

NARRATIVE: CASE EVENT DATE: 201312
